FAERS Safety Report 8816913 (Version 1)
Quarter: 2012Q4

REPORT INFORMATION
  Report Type: Spontaneous
  Country: US (occurrence: None)
  Receive Date: 20121002
  Receipt Date: 20121002
  Transmission Date: 20130627
  Serious: Yes (Death, Other)
  Sender: FDA-Public Use
  Company Number: None

PATIENT
  Age: 53 Year
  Sex: Female
  Weight: 74.84 kg

DRUGS (1)
  1. PRADAXA [Suspect]
     Indication: THROMBOSIS PROPHYLAXIS
     Dosage: 1 2X/day po
     Route: 048
     Dates: start: 20111208, end: 20120218

REACTIONS (7)
  - Melaena [None]
  - Haematochezia [None]
  - Encephalopathy [None]
  - Abdominal pain [None]
  - Upper gastrointestinal haemorrhage [None]
  - Septic shock [None]
  - Pneumonia [None]
